FAERS Safety Report 15289731 (Version 3)
Quarter: 2020Q3

REPORT INFORMATION
  Report Type: Spontaneous
  Country: US (occurrence: US)
  Receive Date: 20180817
  Receipt Date: 20200904
  Transmission Date: 20201102
  Serious: Yes (Hospitalization, Other)
  Sender: FDA-Public Use
  Company Number: US-ASTRAZENECA-2018SF02311

PATIENT
  Age: 16146 Day
  Sex: Female
  Weight: 99.8 kg

DRUGS (8)
  1. SEROQUEL [Suspect]
     Active Substance: QUETIAPINE FUMARATE
     Indication: INSOMNIA
     Dosage: AT NIGHT
     Route: 048
     Dates: start: 2017, end: 201710
  2. AMITRIPTYLINE [Concomitant]
     Active Substance: AMITRIPTYLINE
     Indication: BLADDER DISORDER
     Route: 048
     Dates: start: 2010
  3. VITAMIN D 2 [Concomitant]
     Indication: VITAMIN D DECREASED
     Dosage: 50000.0IU UNKNOWN
     Route: 048
  4. AMITRIPTYLINE [Concomitant]
     Active Substance: AMITRIPTYLINE
     Indication: INSOMNIA
     Route: 048
     Dates: start: 2010
  5. LITHIUM CARBONATE. [Concomitant]
     Active Substance: LITHIUM CARBONATE
     Indication: BIPOLAR DISORDER
     Route: 048
     Dates: start: 2017
  6. PROVENTIL [Concomitant]
     Active Substance: ALBUTEROL
     Indication: ASTHMA
     Dosage: UG/INHAL AS REQUIRED
     Route: 055
     Dates: start: 2014
  7. CYMBALTA [Concomitant]
     Active Substance: DULOXETINE HYDROCHLORIDE
     Indication: TREMOR
  8. SEROQUEL [Suspect]
     Active Substance: QUETIAPINE FUMARATE
     Indication: DEPRESSION
     Dosage: AT NIGHT
     Route: 048
     Dates: start: 2017, end: 201710

REACTIONS (14)
  - Coronary artery occlusion [Unknown]
  - Blood pressure fluctuation [Unknown]
  - Dementia [Unknown]
  - Tardive dyskinesia [Unknown]
  - Electrocardiogram T wave abnormal [Unknown]
  - Reading disorder [Unknown]
  - Speech disorder [Unknown]
  - Bipolar disorder [Unknown]
  - Tremor [Unknown]
  - Hypoacusis [Unknown]
  - Tooth disorder [Unknown]
  - Memory impairment [Unknown]
  - Vitamin D decreased [Unknown]
  - Temporomandibular joint syndrome [Unknown]

NARRATIVE: CASE EVENT DATE: 20180627
